FAERS Safety Report 11788858 (Version 1)
Quarter: 2015Q4

REPORT INFORMATION
  Report Type: Spontaneous
  Country: MA (occurrence: MA)
  Receive Date: 20151201
  Receipt Date: 20151201
  Transmission Date: 20160305
  Serious: Yes (Other)
  Sender: FDA-Public Use
  Company Number: MA-WATSON-2015-17061

PATIENT
  Age: 55 Year
  Sex: Male

DRUGS (2)
  1. CIPROFLOXACIN (WATSON LABORATORIES) [Suspect]
     Active Substance: CIPROFLOXACIN
     Indication: RETINAL OPERATION
     Dosage: UNK
     Route: 047
  2. CIPROFLOXACIN. [Suspect]
     Active Substance: CIPROFLOXACIN
     Indication: RETINAL OPERATION
     Dosage: UNK
     Route: 047

REACTIONS (3)
  - Visual acuity reduced [Not Recovered/Not Resolved]
  - Corneal deposits [Unknown]
  - Corneal opacity [Not Recovered/Not Resolved]
